FAERS Safety Report 10224724 (Version 1)
Quarter: 2014Q2

REPORT INFORMATION
  Report Type: Spontaneous
  Country: JP (occurrence: JP)
  Receive Date: 20140609
  Receipt Date: 20140609
  Transmission Date: 20141212
  Serious: Yes (Hospitalization)
  Sender: FDA-Public Use
  Company Number: JP-MYLANLABS-2014S1012888

PATIENT
  Age: 69 Year
  Sex: Female

DRUGS (1)
  1. RISPERIDONE [Suspect]
     Indication: SCHIZOPHRENIA
     Dosage: 2MG/DAY
     Route: 065

REACTIONS (2)
  - Pancreatitis acute [Recovering/Resolving]
  - Cholelithiasis [Recovering/Resolving]
